FAERS Safety Report 8260834-2 (Version None)
Quarter: 2012Q2

REPORT INFORMATION
  Report Type: 
  Country: None (occurrence: None)
  Receive Date: 20120402
  Receipt Date: 20120323
  Transmission Date: 20120825
  Serious: Yes (Life-Threatening, Hospitalization, Disabling, Other)
  Sender: FDA-Public Use
  Company Number: 2012SP016289

PATIENT
  Age: 57 Year
  Sex: Female

DRUGS (4)
  1. VICTRELIS [Suspect]
     Indication: HEPATITIS C
     Dosage: ;QD;PO
     Route: 048
     Dates: start: 20120101
  2. VICTRELIS [Suspect]
     Indication: HEPATITIS C
     Dosage: ;QD;PO
     Route: 048
     Dates: start: 20110801, end: 20120101
  3. RIBAVIRIN [Suspect]
     Indication: HEPATITIS C
     Dosage: ;QD;PO
     Route: 048
  4. PEG-INTRON [Suspect]
     Indication: HEPATITIS C
     Dosage: ;QW;
     Dates: start: 20110701

REACTIONS (4)
  - ESCHERICHIA INFECTION [None]
  - CANDIDIASIS [None]
  - PNEUMONIA [None]
  - STAPHYLOCOCCAL INFECTION [None]
